FAERS Safety Report 11396934 (Version 5)
Quarter: 2015Q4

REPORT INFORMATION
  Report Type: Spontaneous
  Country: US (occurrence: US)
  Receive Date: 20150819
  Receipt Date: 20151016
  Transmission Date: 20160304
  Serious: No
  Sender: FDA-Public Use
  Company Number: US-PFIZER INC-2015272113

PATIENT
  Age: 72 Year
  Sex: Female

DRUGS (3)
  1. PREMARIN [Suspect]
     Active Substance: ESTROGENS, CONJUGATED
     Dosage: 0.5 G, 1X/DAY (AT BEDTIME), 0.625MG/G
     Route: 067
     Dates: start: 20150814, end: 20150914
  2. PREMARIN [Suspect]
     Active Substance: ESTROGENS, CONJUGATED
     Indication: ATROPHIC VULVOVAGINITIS
     Dosage: UNK UNK, 2X/WEEK
     Route: 067
     Dates: start: 20150630
  3. CIPROFLOXACIN HCL [Concomitant]
     Active Substance: CIPROFLOXACIN HYDROCHLORIDE
     Dosage: UNK

REACTIONS (11)
  - Pelvic pain [Recovered/Resolved]
  - Fatigue [Unknown]
  - Night sweats [Unknown]
  - Fluid retention [Unknown]
  - Pain in extremity [Unknown]
  - Tremor [Unknown]
  - Drug ineffective [Unknown]
  - Hot flush [Unknown]
  - Vision blurred [Unknown]
  - Abdominal pain [Unknown]
  - Nightmare [Unknown]

NARRATIVE: CASE EVENT DATE: 20150815
